FAERS Safety Report 8383115-5 (Version None)
Quarter: 2012Q2

REPORT INFORMATION
  Report Type: 
  Country: None (occurrence: None)
  Receive Date: 20120522
  Receipt Date: 20120511
  Transmission Date: 20120825
  Serious: Yes (Other)
  Sender: FDA-Public Use
  Company Number: DKLU1080334

PATIENT
  Age: 10 Year
  Sex: Male

DRUGS (3)
  1. PHENYTOIN [Concomitant]
  2. SABRIL [Suspect]
     Indication: GRAND MAL CONVULSION
     Dosage: 1000MG MILLIGRAM(S), 2 IN 1 D, ORAL
     Route: 048
     Dates: start: 20120314
  3. CELONTIN [Concomitant]

REACTIONS (3)
  - CONVULSION [None]
  - INAPPROPRIATE AFFECT [None]
  - ATONIC SEIZURES [None]
